FAERS Safety Report 5848382-8 (Version None)
Quarter: 2008Q3

REPORT INFORMATION
  Report Type: 
  Country: None (occurrence: None)
  Receive Date: 20080818
  Receipt Date: 20080718
  Transmission Date: 20090109
  Serious: No
  Sender: FDA-Public Use
  Company Number: US-BAYER-200828473NA

PATIENT
  Sex: Male

DRUGS (1)
  1. BETASERON [Suspect]

REACTIONS (1)
  - LEUKOPENIA [None]
